FAERS Safety Report 4299078-8 (Version None)
Quarter: 2004Q1

REPORT INFORMATION
  Report Type: 
  Country: None (occurrence: None)
  Receive Date: 20040219
  Receipt Date: 20040213
  Transmission Date: 20041129
  Serious: Yes (Hospitalization)
  Sender: FDA-Public Use
  Company Number: 200412064GDDC

PATIENT
  Age: 79 Year
  Sex: Male

DRUGS (11)
  1. FLUDEX [Suspect]
     Indication: DRUG USE FOR UNKNOWN INDICATION
     Route: 048
  2. LOVENOX [Suspect]
     Indication: DRUG USE FOR UNKNOWN INDICATION
     Dosage: DOSE: UNK
     Route: 058
     Dates: end: 20040115
  3. PROZAC [Suspect]
     Indication: DRUG USE FOR UNKNOWN INDICATION
     Route: 048
     Dates: end: 20040107
  4. TEGRETOL [Suspect]
     Indication: DRUG USE FOR UNKNOWN INDICATION
     Dosage: DOSE: 2 DF
     Route: 048
  5. MOPRAL [Suspect]
     Indication: DRUG USE FOR UNKNOWN INDICATION
     Dosage: DOSE: UNK
     Route: 048
  6. LIORESAL [Suspect]
     Indication: DRUG USE FOR UNKNOWN INDICATION
  7. PRAXILENE [Concomitant]
  8. MOTILIUM [Concomitant]
  9. DIFFU K [Concomitant]
  10. FORLAX [Concomitant]
  11. XYZAL [Concomitant]

REACTIONS (1)
  - ECZEMA [None]
